FAERS Safety Report 22349268 (Version 1)
Quarter: 2023Q2

REPORT INFORMATION
  Report Type: Spontaneous
  Country: GB (occurrence: GB)
  Receive Date: 20230522
  Receipt Date: 20230522
  Transmission Date: 20230722
  Serious: Yes (Hospitalization, Other)
  Sender: FDA-Public Use
  Company Number: None

PATIENT
  Age: 57 Year
  Sex: Male

DRUGS (11)
  1. ALLOPURINOL [Suspect]
     Active Substance: ALLOPURINOL
     Indication: Product used for unknown indication
     Route: 048
  2. CARBAMAZEPINE [Suspect]
     Active Substance: CARBAMAZEPINE
     Indication: Epilepsy
     Dosage: 100 MG 1 OM + 1 ON INCREASED TO 2 OM + 2 ON FOR 4 DAYS BUT WASN^T AGREEING SO WENT BACK
  3. AMMONIUM CHLORIDE [Concomitant]
     Active Substance: AMMONIUM CHLORIDE
  4. DIPHENHYDRAMINE [Concomitant]
     Active Substance: DIPHENHYDRAMINE
     Dosage: NIGHT
     Route: 048
  5. FELODIPINE [Concomitant]
     Active Substance: FELODIPINE
     Dosage: AFTERNOON
     Route: 048
  6. LEVOTHYROXINE SODIUM [Concomitant]
     Active Substance: LEVOTHYROXINE SODIUM
     Dosage: MORNING
  7. ACETAMINOPHEN [Concomitant]
     Active Substance: ACETAMINOPHEN
  8. PSEUDOEPHEDRINE [Concomitant]
     Active Substance: PSEUDOEPHEDRINE
  9. CHOLECALCIFEROL [Concomitant]
     Active Substance: CHOLECALCIFEROL
  10. AVEENO [Concomitant]
     Active Substance: DIMETHICONE\HOMOSALATE\OCTINOXATE\OCTISALATE\TITANIUM DIOXIDE
     Route: 062
  11. OTOMIZE [Concomitant]
     Dosage: TO BE USED IN THE AFFECTED EAR(S)

REACTIONS (3)
  - Bicytopenia [Unknown]
  - Rash [Unknown]
  - Neutropenia [Unknown]
